FAERS Safety Report 24742238 (Version 2)
Quarter: 2024Q4

REPORT INFORMATION
  Report Type: Report from Study
  Country: US (occurrence: US)
  Receive Date: 20241217
  Receipt Date: 20241230
  Transmission Date: 20250114
  Serious: Yes (Hospitalization)
  Sender: Kenvue
  Company Number: US-UCBSA-2024048569

PATIENT
  Sex: Male
  Weight: 88.2 kg

DRUGS (19)
  1. CETIRIZINE HYDROCHLORIDE [Suspect]
     Active Substance: CETIRIZINE HYDROCHLORIDE
     Indication: Hypersensitivity
     Dosage: 10 MILLIGRAM, ONCE DAILY (QD)
     Route: 048
  2. BRIVARACETAM [Suspect]
     Active Substance: BRIVARACETAM
     Indication: Seizure
     Dosage: 50 MILLIGRAM, 2X/DAY (BID)
     Route: 048
     Dates: start: 20240725, end: 20241204
  3. BRIVARACETAM [Suspect]
     Active Substance: BRIVARACETAM
     Dosage: 50MG CUT IN HALF IN AM AND FULL TAB AT NIGHT
     Route: 048
     Dates: start: 20240815
  4. BRIVARACETAM [Suspect]
     Active Substance: BRIVARACETAM
     Dosage: 1 (ONE) TIME EACH DAY IN THE MORNING AD 2 TABLETS (50 MG TOTAL) EVERY NIGHT AT BEDTIME., 2X/DAY (BID
     Route: 048
     Dates: start: 20241204
  5. BRIVARACETAM [Suspect]
     Active Substance: BRIVARACETAM
     Dosage: 25 MG IN AM AND 50 MG IN PM
     Route: 065
  6. ALBUTEROL SULFATE [Concomitant]
     Active Substance: ALBUTEROL SULFATE
     Indication: Wheezing
     Dosage: INHALER, INHALE 2 PUFFS EVERY 6 (SIX) HOURS IF NEEDED
     Route: 065
  7. COENZYME Q10 [Concomitant]
     Active Substance: DIETARY SUPPLEMENT\UBIDECARENONE
     Indication: Product used for unknown indication
     Dosage: 200 MILLIGRAM, ONCE DAILY (QD)
     Route: 048
  8. FAMOTIDINE [Concomitant]
     Active Substance: FAMOTIDINE
     Indication: Gastrooesophageal reflux disease
     Dosage: 40 MILLIGRAM, 2X/DAY (BID)
     Route: 048
  9. FERROUS SULFATE [Concomitant]
     Active Substance: FERROUS SULFATE
     Indication: Product used for unknown indication
     Dosage: UNK, ONCE DAILY (QD)
     Route: 048
  10. FUROSEMIDE [Concomitant]
     Active Substance: FUROSEMIDE
     Indication: Coronary artery bypass
     Dosage: 20 MILLIGRAM, ONCE DAILY (QD)
     Route: 048
  11. IPRATROPIUM [Concomitant]
     Active Substance: IPRATROPIUM
     Indication: Product used for unknown indication
     Dosage: ADMINISTER 2 SPRAYS INTO EACH NOSTRIL EVERY, 2X/DAY (BID)
     Route: 065
  12. LEVOTHYROXINE [Concomitant]
     Active Substance: LEVOTHYROXINE
     Indication: Hypothyroidism
     Dosage: 112 MICROGRAM, ONCE DAILY (QD)
     Route: 048
  13. POTASSIUM GLUCONATE [Concomitant]
     Active Substance: POTASSIUM GLUCONATE
     Indication: Product used for unknown indication
     Dosage: 595 MG (99 MG), TAKE 1 TABLET
     Route: 065
  14. ROSUVASTATIN [Concomitant]
     Active Substance: ROSUVASTATIN
     Indication: Coronary artery bypass
     Dosage: 5 MILLIGRAM,EVERY NIGHT AT BEDTIME.,
     Route: 048
  15. SPIRONOLACTONE [Concomitant]
     Active Substance: SPIRONOLACTONE
     Indication: Coronary artery bypass
     Dosage: 12.5 MILLIGRAM, ONCE DAILY (QD)
     Route: 048
  16. SYMBICORT [Concomitant]
     Active Substance: BUDESONIDE\FORMOTEROL FUMARATE DIHYDRATE
     Indication: Asthma
     Dosage: 80-4.5 MCG/ACTUATION INHALER, INHALE 2 PUFFS INTO THE LUNGS EVERY DAY FOR 90 DAYS,
     Route: 065
  17. SYMBICORT [Concomitant]
     Active Substance: BUDESONIDE\FORMOTEROL FUMARATE DIHYDRATE
     Dosage: 2 PUFFS, 2X/DAY (BID)
     Route: 065
  18. TIOTROPIUM [Concomitant]
     Active Substance: TIOTROPIUM
     Indication: Asthma
     Dosage: 18 MCG INHALATION CAPSULE, PLACE 1 CAPSULE INTO INHALER AND INHALE 1 (ONE) TIME EACH DAY, 0.00125 MG
     Route: 065
  19. CETIRIZINE [Concomitant]
     Active Substance: CETIRIZINE HYDROCHLORIDE
     Indication: Hypersensitivity
     Dosage: 10 MILLIGRAM, ONCE A DAY
     Route: 048

REACTIONS (8)
  - Visual field defect [Unknown]
  - Aphasia [Unknown]
  - Balance disorder [Not Recovered/Not Resolved]
  - Gait disturbance [Not Recovered/Not Resolved]
  - Fatigue [Not Recovered/Not Resolved]
  - Depressed mood [Recovered/Resolved]
  - Off label use [Unknown]
  - Wrong technique in product usage process [Unknown]

NARRATIVE: CASE EVENT DATE: 20240101
